FAERS Safety Report 5224398-X (Version None)
Quarter: 2007Q1

REPORT INFORMATION
  Report Type: 
  Country: None (occurrence: None)
  Receive Date: 20070130
  Receipt Date: 20061229
  Transmission Date: 20070707
  Serious: Yes (Other)
  Sender: FDA-Public Use
  Company Number: US-PFIZER INC-2006077201

PATIENT
  Sex: Female
  Weight: 63.5 kg

DRUGS (11)
  1. BEXTRA [Suspect]
     Indication: ARTHRITIS
  2. BEXTRA [Suspect]
     Indication: FIBROMYALGIA
  3. VIOXX [Suspect]
     Indication: RHEUMATOID ARTHRITIS
  4. VIOXX [Suspect]
     Indication: FIBROMYALGIA
  5. ACETYLSALICYLIC ACID [Concomitant]
  6. CELEBREX [Concomitant]
  7. DARVOCET [Concomitant]
  8. MOBIC [Concomitant]
  9. PERCOCET [Concomitant]
  10. TYLENOL W/ CODEINE [Concomitant]
  11. ULTRAM [Concomitant]

REACTIONS (1)
  - CEREBROVASCULAR ACCIDENT [None]
